FAERS Safety Report 16584819 (Version 4)
Quarter: 2019Q3

REPORT INFORMATION
  Report Type: Report from Study
  Country: US (occurrence: US)
  Receive Date: 20190717
  Receipt Date: 20190827
  Transmission Date: 20191004
  Serious: Yes (Hospitalization, Other)
  Sender: FDA-Public Use
  Company Number: US-BRISTOL-MYERS SQUIBB COMPANY-BMS-2019-068128

PATIENT
  Age: 49 Year
  Sex: Male
  Weight: 89.3 kg

DRUGS (2)
  1. NIVOLUMAB [Suspect]
     Active Substance: NIVOLUMAB
     Indication: METASTATIC RENAL CELL CARCINOMA
     Dosage: 240 MILLIGRAM, Q2WK
     Route: 042
     Dates: start: 20180305, end: 20190403
  2. CABOZANTINIB [Suspect]
     Active Substance: CABOZANTINIB
     Indication: METASTATIC RENAL CELL CARCINOMA
     Dosage: 40 MILLIGRAM, QD
     Route: 048
     Dates: start: 20180305, end: 20190403

REACTIONS (4)
  - Bronchial fistula [Recovering/Resolving]
  - Pneumonia [Unknown]
  - Diarrhoea [Unknown]
  - Proctalgia [Unknown]

NARRATIVE: CASE EVENT DATE: 20190708
